FAERS Safety Report 10077828 (Version 1)
Quarter: 2014Q2

REPORT INFORMATION
  Report Type: Report from Study
  Country: CL (occurrence: CL)
  Receive Date: 20140414
  Receipt Date: 20140414
  Transmission Date: 20141212
  Serious: Yes (Other)
  Sender: FDA-Public Use
  Company Number: PHHY2014CL045409

PATIENT
  Sex: Male

DRUGS (3)
  1. LEPONEX [Suspect]
     Indication: SCHIZOPHRENIA
     Dosage: UNK UKN, UNK
     Route: 048
  2. LEPONEX [Suspect]
     Indication: PARANOIA
     Dosage: 500 MG, UNK
     Route: 048
  3. ASPIRIN [Concomitant]
     Indication: PAIN
     Dosage: UNK UKN, UNK
     Route: 048

REACTIONS (6)
  - Psychotic disorder [Unknown]
  - Increased appetite [Not Recovered/Not Resolved]
  - Headache [Not Recovered/Not Resolved]
  - Dizziness [Not Recovered/Not Resolved]
  - Somnolence [Not Recovered/Not Resolved]
  - Wrong technique in drug usage process [Unknown]
